FAERS Safety Report 26145354 (Version 1)
Quarter: 2025Q4

REPORT INFORMATION
  Report Type: Spontaneous
  Country: GB (occurrence: GB)
  Receive Date: 20251211
  Receipt Date: 20251211
  Transmission Date: 20260118
  Serious: Yes (Hospitalization, Other)
  Sender: BOEHRINGER INGELHEIM
  Company Number: None

PATIENT
  Sex: Male

DRUGS (3)
  1. EMPAGLIFLOZIN [Suspect]
     Active Substance: EMPAGLIFLOZIN
     Indication: Type 2 diabetes mellitus
     Dates: start: 20250902, end: 20250922
  2. METFORMIN [Concomitant]
     Active Substance: METFORMIN HYDROCHLORIDE
     Indication: Type 2 diabetes mellitus
  3. ATORVASTATIN [Concomitant]
     Active Substance: ATORVASTATIN
     Indication: Prophylaxis

REACTIONS (1)
  - Hyperglycaemic hyperosmolar nonketotic syndrome [Recovered/Resolved]

NARRATIVE: CASE EVENT DATE: 20250922
